FAERS Safety Report 9034500 (Version 2)
Quarter: 2013Q2

REPORT INFORMATION
  Report Type: Spontaneous
  Country: US (occurrence: None)
  Receive Date: 20121219
  Receipt Date: 20130418
  Transmission Date: 20140414
  Serious: Yes (Hospitalization)
  Sender: FDA-Public Use
  Company Number: 2012PROUSA02349

PATIENT
  Age: 91 Year
  Sex: Male
  Weight: 68.5 kg

DRUGS (17)
  1. PROVENGE (SIPULEUCEL-T) SUSPENSION [Suspect]
     Indication: PROSTATE CANCER METASTATIC
     Route: 042
     Dates: start: 20120802, end: 20120802
  2. AMLODIPINE (AMLODIPINE BESILATE) [Concomitant]
  3. ASPIRIN (ACETYLSALICYLIC ACID) [Concomitant]
  4. CITRACAL (CALCIUM CITRATE) [Concomitant]
  5. COUMADIN (WARFARIN SODIUM) [Concomitant]
  6. FINASTERIDE (FINASTERIDE) [Concomitant]
  7. FISH OIL (FISH OIL) [Concomitant]
  8. ISOSORBIDE (ISOSORBIDE) [Concomitant]
  9. LIPITOR (ATORVASTATIN CALCIUM) [Concomitant]
  10. METAMUCIL (PLANTAGO OVATA) [Concomitant]
  11. OMEPRAZOLE (OMEPRAZOLE) [Concomitant]
  12. DOCUSATE (DOCUSATE) [Concomitant]
  13. SYNTHROID (LEVOTHYROXINE SODIUM) [Concomitant]
  14. TIMOLOL MALEATE (TIMOLOL MALEATE) [Concomitant]
  15. TOVIAZ (FESOLERODINE FUMARATE) [Concomitant]
  16. VITAMIN D (ERGOCALCIFEROL) [Concomitant]
  17. ZYTIGA (ABIRATERONE ACETATE) [Concomitant]

REACTIONS (17)
  - Syncope [None]
  - Subarachnoid haemorrhage [None]
  - Cerebral haemorrhage [None]
  - Fall [None]
  - Head injury [None]
  - Bradycardia [None]
  - Cardiac pacemaker insertion [None]
  - Blood thyroid stimulating hormone increased [None]
  - Infection [None]
  - Inappropriate antidiuretic hormone secretion [None]
  - Anaemia [None]
  - Visual impairment [None]
  - Constipation [None]
  - Incontinence [None]
  - Pollakiuria [None]
  - Gait disturbance [None]
  - Dysphagia [None]
